FAERS Safety Report 14121143 (Version 1)
Quarter: 2017Q4

REPORT INFORMATION
  Report Type: Spontaneous
  Country: US (occurrence: US)
  Receive Date: 20171024
  Receipt Date: 20171024
  Transmission Date: 20180321
  Serious: No
  Sender: FDA-Public Use
  Company Number: US-PERRIGO-17US023920

PATIENT
  Age: 74 Year
  Sex: Female
  Weight: 68.27 kg

DRUGS (7)
  1. IMIQUIMOD. [Suspect]
     Active Substance: IMIQUIMOD
     Dosage: SMALL AMOUNT, QD
     Route: 061
     Dates: start: 20170501, end: 20170503
  2. IMIQUIMOD. [Suspect]
     Active Substance: IMIQUIMOD
     Dosage: SMALL AMOUNT, SINGLE
     Route: 061
     Dates: start: 20170519, end: 20170519
  3. LEVOTHYROXINE. [Concomitant]
     Active Substance: LEVOTHYROXINE
     Indication: HYPOTHYROIDISM
  4. IMIQUIMOD. [Suspect]
     Active Substance: IMIQUIMOD
     Indication: BASAL CELL CARCINOMA
     Dosage: SMALL AMOUNT, QD
     Route: 061
     Dates: start: 20170327, end: 20170409
  5. IMIQUIMOD. [Suspect]
     Active Substance: IMIQUIMOD
     Dosage: SMALL AMOUNT, QD
     Route: 061
     Dates: start: 20170522, end: 20170523
  6. IMIQUIMOD. [Suspect]
     Active Substance: IMIQUIMOD
     Dosage: SMALL AMOUNT, SINGLE
     Route: 061
     Dates: start: 20170516, end: 20170516
  7. LEVOTHYROXINE. [Concomitant]
     Active Substance: LEVOTHYROXINE
     Indication: AUTOIMMUNE THYROIDITIS
     Dosage: UNK
     Route: 065
     Dates: start: 1992

REACTIONS (12)
  - Paraesthesia [Recovered/Resolved]
  - Ocular hyperaemia [Recovering/Resolving]
  - Hypersensitivity [Recovering/Resolving]
  - Application site paraesthesia [Recovered/Resolved]
  - Inappropriate schedule of drug administration [Recovered/Resolved with Sequelae]
  - Eye inflammation [Recovering/Resolving]
  - Eye irritation [Recovering/Resolving]
  - Wrong technique in product usage process [Recovered/Resolved]
  - Flushing [Recovered/Resolved]
  - Feeling hot [Recovered/Resolved]
  - Application site warmth [Recovered/Resolved]
  - Lacrimation increased [Recovering/Resolving]

NARRATIVE: CASE EVENT DATE: 2017
